FAERS Safety Report 18606238 (Version 2)
Quarter: 2021Q1

REPORT INFORMATION
  Report Type: Spontaneous
  Country: DE (occurrence: DE)
  Receive Date: 20201211
  Receipt Date: 20210102
  Transmission Date: 20210419
  Serious: Yes (Other)
  Sender: FDA-Public Use
  Company Number: DE-ASTRAZENECA-2020SF63188

PATIENT
  Age: 90 Year
  Sex: Male

DRUGS (4)
  1. SYMBICORT [Suspect]
     Active Substance: BUDESONIDE\FORMOTEROL FUMARATE DIHYDRATE
     Indication: CHRONIC OBSTRUCTIVE PULMONARY DISEASE
     Dosage: 320/9 UG, 2 INHALATION IN THE MORNING, 2 INHALATION IN THE EVENING
     Route: 055
     Dates: start: 2019
  2. SYMBICORT [Suspect]
     Active Substance: BUDESONIDE\FORMOTEROL FUMARATE DIHYDRATE
     Indication: CHRONIC OBSTRUCTIVE PULMONARY DISEASE
     Dosage: 320/9 UG, 1 INHALATION IN THE MORNING, 1 INHALATION IN THE EVENING
     Route: 055
     Dates: start: 2016
  3. LAMA [Concomitant]
     Indication: OBSTRUCTIVE AIRWAYS DISORDER
     Dosage: 2,5, 2?0?0
     Route: 065
     Dates: start: 2016
  4. FASENRA [Suspect]
     Active Substance: BENRALIZUMAB
     Indication: ASTHMA
     Route: 058
     Dates: start: 201902

REACTIONS (4)
  - Chronic obstructive pulmonary disease [Recovering/Resolving]
  - Asthma-chronic obstructive pulmonary disease overlap syndrome [Recovering/Resolving]
  - Dyspnoea exertional [Recovering/Resolving]
  - Asthma [Recovering/Resolving]

NARRATIVE: CASE EVENT DATE: 201804
